FAERS Safety Report 24083042 (Version 1)
Quarter: 2024Q3

REPORT INFORMATION
  Report Type: Spontaneous
  Country: TW (occurrence: TW)
  Receive Date: 20240712
  Receipt Date: 20240712
  Transmission Date: 20241017
  Serious: Yes (Life-Threatening)
  Sender: BOEHRINGER INGELHEIM
  Company Number: TW-BoehringerIngelheim-2024-BI-039190

PATIENT
  Sex: Male
  Weight: 116 kg

DRUGS (2)
  1. MICARDIS [Suspect]
     Active Substance: TELMISARTAN
     Indication: Hypertension
     Route: 048
  2. INDAPAMIDE [Suspect]
     Active Substance: INDAPAMIDE
     Indication: Hypertension
     Route: 048

REACTIONS (3)
  - Acute kidney injury [Recovering/Resolving]
  - Hyperkalaemia [Recovering/Resolving]
  - Hyponatraemia [Recovering/Resolving]
